FAERS Safety Report 20778443 (Version 1)
Quarter: 2022Q2

REPORT INFORMATION
  Report Type: Spontaneous
  Country: US (occurrence: None)
  Receive Date: 20220503
  Receipt Date: 20220503
  Transmission Date: 20220721
  Serious: No
  Sender: FDA-Public Use
  Company Number: None

PATIENT
  Sex: Male

DRUGS (1)
  1. HERBALS\MITRAGYNINE [Suspect]
     Active Substance: HERBALS\MITRAGYNINE
     Indication: Drug dependence

REACTIONS (3)
  - Psychomotor hyperactivity [None]
  - Blood pressure increased [None]
  - Drug dependence [None]

NARRATIVE: CASE EVENT DATE: 20220318
